FAERS Safety Report 10261828 (Version 1)
Quarter: 2014Q2

REPORT INFORMATION
  Report Type: Report from Study
  Country: NL (occurrence: NL)
  Receive Date: 20140626
  Receipt Date: 20140626
  Transmission Date: 20141212
  Serious: Yes (Other)
  Sender: FDA-Public Use
  Company Number: NL-SA-2014SA082412

PATIENT
  Sex: Male

DRUGS (13)
  1. CABAZITAXEL [Suspect]
     Indication: PROSTATE CANCER
     Route: 042
     Dates: start: 20120820, end: 20121001
  2. DUROGESIC [Concomitant]
  3. OXYNORM [Concomitant]
     Dosage: 6DD 5 MG
  4. PARACETAMOL [Concomitant]
     Dosage: 1000 MG 4DD
  5. PREDNISON [Concomitant]
     Dosage: 1 DD 10 MG
  6. AVODART [Concomitant]
     Dosage: 1DD
  7. OMEPRAZOLE [Concomitant]
     Dosage: 1DD
  8. TOLTERODINE TARTRATE [Concomitant]
     Dosage: 2DD
  9. CIPROFLOXACIN [Concomitant]
     Dosage: 2DD
  10. LIDOCAINE [Concomitant]
  11. PAMIDRONATE DISODIUM [Concomitant]
     Dosage: 1X/3 WEEKS
     Route: 042
  12. BLOOD TRANSFUSION, AUXILIARY PRODUCTS [Concomitant]
     Dosage: DOSE:2 UNIT(S)
     Dates: start: 201209
  13. BLOOD TRANSFUSION, AUXILIARY PRODUCTS [Concomitant]
     Dates: start: 20121110

REACTIONS (1)
  - Cystitis [Recovered/Resolved]
